FAERS Safety Report 8606687-1 (Version None)
Quarter: 2012Q3

REPORT INFORMATION
  Report Type: 
  Country: None (occurrence: None)
  Receive Date: 20120820
  Receipt Date: 20120806
  Transmission Date: 20120928
  Serious: Yes (Hospitalization, Other)
  Sender: FDA-Public Use
  Company Number: US-ELI_LILLY_AND_COMPANY-US201208002869

PATIENT
  Sex: Female

DRUGS (2)
  1. HUMALOG [Suspect]
     Dosage: UNK, OTHER
  2. HUMALOG [Suspect]
     Indication: DIABETES MELLITUS
     Dosage: UNK, OTHER
     Dates: start: 20070101

REACTIONS (11)
  - GLAUCOMA [None]
  - RETINOPATHY [None]
  - BLINDNESS [None]
  - ANXIETY [None]
  - ABNORMAL SENSATION IN EYE [None]
  - OPTIC NERVE DISORDER [None]
  - HOSPITALISATION [None]
  - BLOOD PRESSURE INCREASED [None]
  - DEPRESSION [None]
  - DYSPNOEA [None]
  - BLOOD GLUCOSE INCREASED [None]
